FAERS Safety Report 16826858 (Version 2)
Quarter: 2019Q3

REPORT INFORMATION
  Report Type: Spontaneous
  Country: US (occurrence: US)
  Receive Date: 20190919
  Receipt Date: 20190927
  Transmission Date: 20191005
  Serious: Yes (Hospitalization)
  Sender: FDA-Public Use
  Company Number: US-CATALYST PHARMACEUTICALS, INC-2019CAT00393

PATIENT
  Age: 60 Year
  Sex: Female
  Weight: 46.71 kg

DRUGS (2)
  1. CENTRUM DAILY MULTIVITAMIN [Concomitant]
  2. FIRDAPSE [Suspect]
     Active Substance: AMIFAMPRIDINE
     Indication: MYASTHENIC SYNDROME
     Dosage: 10 MG, 6X/DAY
     Route: 048
     Dates: start: 201807

REACTIONS (2)
  - Pneumonia [Recovering/Resolving]
  - Pneumothorax [Unknown]

NARRATIVE: CASE EVENT DATE: 20190822
